FAERS Safety Report 7503441-9 (Version None)
Quarter: 2011Q2

REPORT INFORMATION
  Report Type: 
  Country: None (occurrence: None)
  Receive Date: 20110525
  Receipt Date: 20110516
  Transmission Date: 20111010
  Serious: Yes (Hospitalization)
  Sender: FDA-Public Use
  Company Number: US-ASTRAZENECA-2011SE29828

PATIENT
  Age: 18686 Day
  Sex: Female
  Weight: 46.3 kg

DRUGS (7)
  1. MORPHINE SULFATE [Concomitant]
     Dates: start: 20110425
  2. FOSAMAX [Concomitant]
     Route: 048
     Dates: start: 20110421
  3. TEMAZ [Concomitant]
     Route: 048
     Dates: start: 20110421
  4. PROAIR HFA [Concomitant]
     Route: 055
     Dates: start: 20110425
  5. CHANTIX [Concomitant]
     Route: 048
     Dates: start: 20110426
  6. IMITREX [Concomitant]
     Dates: start: 20110421
  7. SYMBICORT [Suspect]
     Dosage: 160/4.5 MCG TWO INHALATIONS BID
     Route: 055
     Dates: start: 20110421

REACTIONS (1)
  - CHRONIC OBSTRUCTIVE PULMONARY DISEASE [None]
